FAERS Safety Report 8156670-8 (Version None)
Quarter: 2012Q1

REPORT INFORMATION
  Report Type: 
  Country: None (occurrence: None)
  Receive Date: 20120222
  Receipt Date: 20120214
  Transmission Date: 20120608
  Serious: Yes (Hospitalization)
  Sender: FDA-Public Use
  Company Number: US-BAYER-201039432NA

PATIENT
  Age: 41 Year
  Sex: Female
  Weight: 84 kg

DRUGS (5)
  1. IBUPROFEN TABLETS [Concomitant]
     Dosage: 800 MG, UNK
     Route: 048
  2. AZITHROMYCIN [Concomitant]
     Dosage: 250 MG, UNK
     Route: 048
     Dates: start: 20081106
  3. YAZ [Suspect]
     Indication: UTERINE LEIOMYOMA
  4. YAZ [Suspect]
     Indication: MENSTRUAL CYCLE MANAGEMENT
     Dosage: UNK UNK, UNK
     Route: 048
     Dates: start: 20080801, end: 20081101
  5. CYCLOBENZAPRINE [Concomitant]
     Dosage: 7.5 MG, UNK
     Route: 048
     Dates: start: 20081106

REACTIONS (2)
  - THROMBOSIS [None]
  - INTRACRANIAL VENOUS SINUS THROMBOSIS [None]
